FAERS Safety Report 8027586-2 (Version None)
Quarter: 2012Q1

REPORT INFORMATION
  Report Type: 
  Country: None (occurrence: None)
  Receive Date: 20120105
  Receipt Date: 20120105
  Transmission Date: 20120608
  Serious: Yes (Other)
  Sender: FDA-Public Use
  Company Number: None

PATIENT
  Age: 57 Year
  Sex: Female

DRUGS (1)
  1. PREGABALIN [Suspect]
     Dates: start: 20110922

REACTIONS (3)
  - DIPLOPIA [None]
  - SEDATION [None]
  - VISUAL IMPAIRMENT [None]
